FAERS Safety Report 20497529 (Version 2)
Quarter: 2022Q1

REPORT INFORMATION
  Report Type: Spontaneous
  Country: US (occurrence: None)
  Receive Date: 20220221
  Receipt Date: 20220316
  Transmission Date: 20220424
  Serious: No
  Sender: FDA-Public Use
  Company Number: 2022A044642

PATIENT
  Sex: Female

DRUGS (4)
  1. BYDUREON BCISE [Suspect]
     Active Substance: EXENATIDE
     Indication: Diabetes mellitus
     Route: 058
     Dates: start: 202111
  2. METROPROL SUCCINATE ER [Concomitant]
  3. HYDROCHLOROTHIAZIDE\VALSARTAN [Concomitant]
     Active Substance: HYDROCHLOROTHIAZIDE\VALSARTAN
     Dosage: 320 25MG, ONCE DAY
  4. GLYBURIDE [Concomitant]
     Active Substance: GLYBURIDE
     Dosage: 5 MG

REACTIONS (3)
  - Abdominal discomfort [Unknown]
  - Insulin resistance [Unknown]
  - Wrong technique in device usage process [Unknown]
